FAERS Safety Report 20591392 (Version 1)
Quarter: 2022Q1

REPORT INFORMATION
  Report Type: Spontaneous
  Country: US (occurrence: US)
  Receive Date: 20220314
  Receipt Date: 20220314
  Transmission Date: 20220423
  Serious: No
  Sender: FDA-Public Use
  Company Number: US-SA-2022SA068204

PATIENT
  Age: 9 Year
  Sex: Male

DRUGS (1)
  1. LARONIDASE [Suspect]
     Active Substance: LARONIDASE
     Indication: Mucopolysaccharidosis I
     Dosage: 20.30 MG, QW
     Route: 042
     Dates: start: 20210610

REACTIONS (3)
  - Ear infection fungal [Unknown]
  - Weight increased [Unknown]
  - Ear tube removal [Unknown]

NARRATIVE: CASE EVENT DATE: 20220228
